FAERS Safety Report 8848394 (Version 12)
Quarter: 2014Q4

REPORT INFORMATION
  Report Type: Spontaneous
  Country: DE (occurrence: DE)
  Receive Date: 20121019
  Receipt Date: 20141030
  Transmission Date: 20150529
  Serious: Yes (Hospitalization)
  Sender: FDA-Public Use
  Company Number: DE-BIOGENIDEC-2012BI044506

PATIENT
  Age: 24 Year
  Sex: Female
  Weight: 56 kg

DRUGS (1)
  1. TYSABRI [Suspect]
     Active Substance: NATALIZUMAB
     Indication: MULTIPLE SCLEROSIS
     Route: 042
     Dates: start: 20070830, end: 20120919

REACTIONS (2)
  - Immune reconstitution inflammatory syndrome [Recovered/Resolved]
  - Progressive multifocal leukoencephalopathy [Not Recovered/Not Resolved]

NARRATIVE: CASE EVENT DATE: 20120912
